FAERS Safety Report 24225520 (Version 2)
Quarter: 2024Q3

REPORT INFORMATION
  Report Type: Report from Study
  Country: US (occurrence: US)
  Receive Date: 20240820
  Receipt Date: 20240826
  Transmission Date: 20241016
  Serious: Yes (Death, Hospitalization)
  Sender: JOHNSON AND JOHNSON
  Company Number: US-JNJFOC-20240844920

PATIENT
  Sex: Female
  Weight: 89.892 kg

DRUGS (1)
  1. SPRAVATO [Suspect]
     Active Substance: ESKETAMINE
     Indication: Depression
     Dosage: ^84 MG, 73 TOTAL DOSES^
     Dates: start: 20211117, end: 20240611

REACTIONS (1)
  - Lung disorder [Fatal]
